FAERS Safety Report 23966353 (Version 3)
Quarter: 2024Q2

REPORT INFORMATION
  Report Type: Spontaneous
  Country: US (occurrence: US)
  Receive Date: 20240612
  Receipt Date: 20240628
  Transmission Date: 20240715
  Serious: Yes (Other)
  Sender: FDA-Public Use
  Company Number: US-VEROBIOTECH-2024USVEROSPO00111

PATIENT
  Age: 9 Year
  Sex: Male

DRUGS (2)
  1. GENOSYL [Suspect]
     Active Substance: NITRIC OXIDE
     Indication: Product used for unknown indication
     Dosage: 20PPM TO 40 PPM
  2. GENOSYL [Suspect]
     Active Substance: NITRIC OXIDE
     Dosage: 99PPM

REACTIONS (3)
  - Right ventricular failure [Unknown]
  - Overdose [Unknown]
  - Device malfunction [Unknown]
